FAERS Safety Report 16092406 (Version 1)
Quarter: 2019Q1

REPORT INFORMATION
  Report Type: Spontaneous
  Country: US (occurrence: US)
  Receive Date: 20190319
  Receipt Date: 20190319
  Transmission Date: 20190418
  Serious: Yes (Death)
  Sender: FDA-Public Use
  Company Number: US-THE RITEDOSE CORPORATION-2019RIT000066

PATIENT

DRUGS (1)
  1. IPRATROPIUM BROMIDE AND ALBUTEROL SULFATE [Suspect]
     Active Substance: ALBUTEROL SULFATE\IPRATROPIUM BROMIDE
     Indication: DYSPNOEA
     Dosage: 1 VIAL, PRN
     Route: 055
     Dates: end: 20190221

REACTIONS (1)
  - Amyotrophic lateral sclerosis [Fatal]

NARRATIVE: CASE EVENT DATE: 20190221
